FAERS Safety Report 10345557 (Version 1)
Quarter: 2014Q3

REPORT INFORMATION
  Report Type: Spontaneous
  Country: US (occurrence: US)
  Receive Date: 20140728
  Receipt Date: 20140728
  Transmission Date: 20150326
  Serious: Yes (Hospitalization, Other)
  Sender: FDA-Public Use
  Company Number: US-PFIZER INC-2014205938

PATIENT
  Age: 78 Year
  Sex: Female
  Weight: 81.63 kg

DRUGS (1)
  1. XALATAN [Suspect]
     Active Substance: LATANOPROST
     Indication: GLAUCOMA
     Dosage: UNK, DAILY (EVERY EVENING)

REACTIONS (3)
  - Hip fracture [Unknown]
  - Thrombosis [Unknown]
  - Pain [Unknown]

NARRATIVE: CASE EVENT DATE: 2014
